FAERS Safety Report 4427387-8 (Version None)
Quarter: 2004Q3

REPORT INFORMATION
  Report Type: 
  Country: None (occurrence: None)
  Receive Date: 20040816
  Receipt Date: 20040816
  Transmission Date: 20050211
  Serious: Yes (Hospitalization)
  Sender: FDA-Public Use
  Company Number: None

PATIENT
  Sex: Female
  Weight: 108.4097 kg

DRUGS (4)
  1. CARBOPLATIN [Suspect]
     Indication: NON-SMALL CELL LUNG CANCER
     Dosage: 205 MG IV
     Route: 042
     Dates: start: 20040726
  2. CARBOPLATIN [Suspect]
     Indication: NON-SMALL CELL LUNG CANCER
     Dosage: 205 MG IV
     Route: 042
     Dates: start: 20040802
  3. DOCETAXEL [Suspect]
     Dosage: 44 MG IV
     Route: 042
     Dates: start: 20040726
  4. DOCETAXEL [Suspect]
     Dosage: 44 MG IV
     Route: 042
     Dates: start: 20040803

REACTIONS (1)
  - THROMBOSIS [None]
